FAERS Safety Report 7358672-8 (Version None)
Quarter: 2011Q1

REPORT INFORMATION
  Report Type: 
  Country: None (occurrence: None)
  Receive Date: 20110317
  Receipt Date: 20110311
  Transmission Date: 20110831
  Serious: Yes (Death)
  Sender: FDA-Public Use
  Company Number: US-PFIZER INC-2006059424

PATIENT
  Sex: Male

DRUGS (3)
  1. NEURONTIN [Suspect]
     Dosage: 400 MG, 3X/DAY
     Dates: start: 19990928
  2. NEURONTIN [Suspect]
     Dosage: UNK,
     Dates: start: 19971119
  3. NEURONTIN [Suspect]
     Indication: ILL-DEFINED DISORDER
     Dosage: 300 MG, 3X/DAY
     Dates: start: 19970801

REACTIONS (1)
  - COMPLETED SUICIDE [None]
